FAERS Safety Report 7708899-8 (Version None)
Quarter: 2011Q3

REPORT INFORMATION
  Report Type: 
  Country: None (occurrence: None)
  Receive Date: 20110825
  Receipt Date: 20110818
  Transmission Date: 20111222
  Serious: Yes (Death, Hospitalization)
  Sender: FDA-Public Use
  Company Number: FR-SANOFI-AVENTIS-2011SA052609

PATIENT
  Age: 78 Year
  Sex: Male

DRUGS (3)
  1. TAXOTERE [Suspect]
     Indication: PROSTATE CANCER
     Dates: start: 20110801, end: 20110801
  2. VALSARTAN/HYDROCHLOROTHIAZIDE [Concomitant]
  3. PREDNISOLONE [Concomitant]
     Indication: PREMEDICATION
     Dates: start: 20110731

REACTIONS (2)
  - CEREBRAL HAEMATOMA [None]
  - THROMBOCYTOPENIA [None]
